FAERS Safety Report 16099998 (Version 1)
Quarter: 2019Q1

REPORT INFORMATION
  Report Type: Spontaneous
  Country: DE (occurrence: DE)
  Receive Date: 20190321
  Receipt Date: 20190321
  Transmission Date: 20190418
  Serious: Yes (Death)
  Sender: FDA-Public Use
  Company Number: DE-MYLANLABS-2019M1025158

PATIENT
  Age: 76 Year
  Sex: Female
  Weight: 60 kg

DRUGS (1)
  1. PIPERACILLIN/TAZOBACTAM [Suspect]
     Active Substance: PIPERACILLIN SODIUM\TAZOBACTAM SODIUM
     Indication: PNEUMONIA
     Dosage: DAILY DOSE: 13.5 G GRAM(S) EVERY DAYS
     Route: 042
     Dates: start: 20180818, end: 20180819

REACTIONS (3)
  - Toxic epidermal necrolysis [Fatal]
  - Rash vesicular [Fatal]
  - Erythema [Fatal]

NARRATIVE: CASE EVENT DATE: 20180819
